FAERS Safety Report 20591807 (Version 1)
Quarter: 2022Q1

REPORT INFORMATION
  Report Type: Spontaneous
  Country: US (occurrence: US)
  Receive Date: 20220314
  Receipt Date: 20220314
  Transmission Date: 20220423
  Serious: No
  Sender: FDA-Public Use
  Company Number: US-PFIZER INC-202200239581

PATIENT
  Age: 83 Year
  Sex: Female

DRUGS (2)
  1. XELJANZ XR [Suspect]
     Active Substance: TOFACITINIB CITRATE
     Dosage: XR 11 MG PO QD BID, 30-DAY SUPPLY
     Route: 048
  2. XELJANZ [Suspect]
     Active Substance: TOFACITINIB CITRATE
     Dosage: 5 MG, 2X/DAY (90 TABLETS)
     Route: 048

REACTIONS (4)
  - Musculoskeletal disorder [Unknown]
  - Condition aggravated [Unknown]
  - Product prescribing issue [Unknown]
  - Off label use [Unknown]
